FAERS Safety Report 24464315 (Version 6)
Quarter: 2025Q3

REPORT INFORMATION
  Report Type: Spontaneous
  Country: US (occurrence: US)
  Receive Date: 20241018
  Receipt Date: 20250905
  Transmission Date: 20251021
  Serious: No
  Sender: ROCHE
  Company Number: US-ROCHE-3498406

PATIENT
  Sex: Female
  Weight: 102.06 kg

DRUGS (5)
  1. XOLAIR [Suspect]
     Active Substance: OMALIZUMAB
     Indication: Hypergammaglobulinaemia
     Dosage: STRENGTH: 300 MG/2 ML
     Route: 058
     Dates: start: 202401
  2. XOLAIR [Suspect]
     Active Substance: OMALIZUMAB
     Indication: Immunodeficiency
  3. HYQVIA [Concomitant]
     Active Substance: HUMAN IMMUNOGLOBULIN G\HYALURONIDASE (HUMAN RECOMBINANT)
  4. SALINE [Concomitant]
     Active Substance: SODIUM CHLORIDE
  5. EPINEPHRINE [Concomitant]
     Active Substance: EPINEPHRINE

REACTIONS (15)
  - Off label use [Unknown]
  - Micturition frequency decreased [Unknown]
  - Dyspnoea [Unknown]
  - Peripheral swelling [Unknown]
  - Joint swelling [Unknown]
  - Pain [Unknown]
  - Pruritus [Unknown]
  - Infusion site swelling [Unknown]
  - Contusion [Unknown]
  - Vascular rupture [Unknown]
  - Haemophilia [Unknown]
  - Infection [Unknown]
  - Platelet disorder [Unknown]
  - Hereditary angioedema [Unknown]
  - Skin injury [Unknown]
